FAERS Safety Report 17936186 (Version 12)
Quarter: 2021Q4

REPORT INFORMATION
  Report Type: Spontaneous
  Country: US (occurrence: US)
  Receive Date: 20200624
  Receipt Date: 20211209
  Transmission Date: 20220303
  Serious: Yes (Hospitalization, Other)
  Sender: FDA-Public Use
  Company Number: US-TEVA-2020-US-1792706

PATIENT
  Age: 56 Year
  Sex: Male

DRUGS (38)
  1. HYDROCHLOROTHIAZIDE\VALSARTAN [Suspect]
     Active Substance: HYDROCHLOROTHIAZIDE\VALSARTAN
     Indication: Hypertension
     Dosage: 1 DOSAGE FORMS DAILY; 320/25MG
     Route: 048
     Dates: start: 20150601, end: 20150706
  2. VALSARTAN [Suspect]
     Active Substance: VALSARTAN
     Indication: Hypertension
     Dosage: 160 MILLIGRAM DAILY;
     Route: 048
  3. HYDROCHLOROTHIAZIDE\VALSARTAN [Suspect]
     Active Substance: HYDROCHLOROTHIAZIDE\VALSARTAN
     Indication: Hypertension
     Dosage: 1 DOSAGE FORMS DAILY; 160/12.5MG?VALSARTAN W/HYDROCHLOROTHIAZIDE LUPIN
     Route: 048
     Dates: start: 20140113, end: 20141201
  4. HYDROCHLOROTHIAZIDE\VALSARTAN [Suspect]
     Active Substance: HYDROCHLOROTHIAZIDE\VALSARTAN
     Dosage: 1 DOSAGE FORMS DAILY; 320/25MG
     Route: 048
     Dates: start: 20150211, end: 20160816
  5. HYDROCHLOROTHIAZIDE\VALSARTAN [Suspect]
     Active Substance: HYDROCHLOROTHIAZIDE\VALSARTAN
     Dosage: 1 DOSAGE FORMS DAILY; 160/12.5MG
     Route: 048
     Dates: start: 20150114, end: 20150211
  6. HYDROCHLOROTHIAZIDE\VALSARTAN [Suspect]
     Active Substance: HYDROCHLOROTHIAZIDE\VALSARTAN
     Dosage: 1 DOSAGE FORMS DAILY; 160-12.5MG
     Route: 048
  7. HYDROCHLOROTHIAZIDE\VALSARTAN [Suspect]
     Active Substance: HYDROCHLOROTHIAZIDE\VALSARTAN
     Indication: Hypertension
     Dosage: 1 DOSAGE FORMS DAILY; 320/25MG
     Route: 048
     Dates: start: 20161012, end: 20171025
  8. HYDROCHLOROTHIAZIDE\VALSARTAN [Suspect]
     Active Substance: HYDROCHLOROTHIAZIDE\VALSARTAN
     Indication: Hypertension
     Dosage: 1 DOSAGE FORMS DAILY; 160/12.5 MG
     Route: 048
  9. DIOVAN [Suspect]
     Active Substance: VALSARTAN
     Indication: Hypertension
     Dosage: 1 DOSAGE FORMS DAILY;
     Route: 048
  10. DIOVAN HCT [Suspect]
     Active Substance: HYDROCHLOROTHIAZIDE\VALSARTAN
     Indication: Hypertension
     Dosage: 1 DOSAGE FORMS DAILY; STRENGTH: 320/25MG
     Route: 048
  11. DIOVAN HCT [Suspect]
     Active Substance: HYDROCHLOROTHIAZIDE\VALSARTAN
     Dosage: 1 DOSAGE FORMS DAILY; STRENGTH: 160/12.5MG
     Route: 048
  12. METFORMIN [Concomitant]
     Active Substance: METFORMIN HYDROCHLORIDE
     Indication: Diabetes mellitus
     Route: 048
  13. LANTUS [Concomitant]
     Active Substance: INSULIN GLARGINE
     Indication: Diabetes mellitus
     Dosage: 100 UNITS 3X DAILY
     Route: 058
  14. NOVOLOGU 100 INSULIN [Concomitant]
     Indication: Diabetes mellitus
  15. ALLOPURINOL [Concomitant]
     Active Substance: ALLOPURINOL
     Indication: Gout
     Dosage: DAILY
     Route: 048
  16. PROBENECID [Concomitant]
     Active Substance: PROBENECID
     Indication: Gout
  17. FLUOXETINE [Concomitant]
     Active Substance: FLUOXETINE HYDROCHLORIDE
     Indication: Depression
  18. FLUOXETINE [Concomitant]
     Active Substance: FLUOXETINE HYDROCHLORIDE
     Indication: Anxiety
  19. TYLENOL [Concomitant]
     Active Substance: ACETAMINOPHEN
     Indication: Pain
     Dosage: 2-50MG AS NEEDED
     Dates: start: 1995
  20. OXYCODONE [Concomitant]
     Active Substance: OXYCODONE
     Indication: Pain
     Dosage: 5MG: 2PRN
  21. METHOTREXATE [Concomitant]
     Active Substance: METHOTREXATE
     Indication: Arthritis
     Dosage: 2.5MG: 6 TABLETS ONCE A WEEK
  22. METOPROLOL SUCCINATE [Concomitant]
     Active Substance: METOPROLOL SUCCINATE
     Indication: Blood pressure measurement
     Dosage: 200 MILLIGRAM DAILY;
     Route: 048
  23. BACTROBAN [Concomitant]
     Active Substance: MUPIROCIN\MUPIROCIN CALCIUM
     Indication: Skin infection
     Dosage: USE AS NEEDED
  24. BUPROPION HYDROCHLORIDE [Concomitant]
     Active Substance: BUPROPION HYDROCHLORIDE
     Indication: Depression
     Dosage: 150 MG : 1X DAILY FOR A WEEK AND THEN 2X DAILY
     Route: 048
  25. COLCHICINE\PROBENECID [Concomitant]
     Active Substance: COLCHICINE\PROBENECID
     Indication: Gout
     Dosage: 0.5-500MG
  26. ROBAXIN [Concomitant]
     Active Substance: METHOCARBAMOL
     Indication: Muscle relaxant therapy
     Dosage: 500 MILLIGRAM DAILY;
     Route: 048
  27. PROZAC [Concomitant]
     Active Substance: FLUOXETINE HYDROCHLORIDE
     Indication: Depression
     Dosage: 200MG:1 X DAILY
     Route: 048
  28. INSULIN LISPRO [Concomitant]
     Active Substance: INSULIN LISPRO
     Indication: Diabetes mellitus
     Dosage: 100 U/ML, 10-20 UNITS 3X DAILY WITH MEALS
     Route: 058
  29. AMOXICILLIN [Concomitant]
     Active Substance: AMOXICILLIN
     Dosage: 333.3333 MILLIGRAM DAILY;
     Route: 048
  30. ATORVASTATIN [Concomitant]
     Active Substance: ATORVASTATIN
     Dosage: 40 MILLIGRAM DAILY;
     Route: 048
  31. AZITHROMYCIN [Concomitant]
     Active Substance: AZITHROMYCIN
     Dosage: TWO TODAY THEN ONE DAILY FOR TEN DAYS
     Route: 048
  32. Betamethasone, Clotrimazole [Concomitant]
     Indication: Rash
     Dosage: 10;0.5 MGLML
     Route: 061
  33. Colchicine, Probenecid [Concomitant]
     Dosage: 0.5; 500MG
     Route: 048
  34. EZETIMIBE [Concomitant]
     Active Substance: EZETIMIBE
     Dosage: 10 MILLIGRAM DAILY;
     Route: 048
  35. FOLIC ACID [Concomitant]
     Active Substance: FOLIC ACID
     Route: 048
  36. BUMETANIDE [Concomitant]
     Active Substance: BUMETANIDE
     Indication: Oedema
     Dosage: 1 MILLIGRAM DAILY;
     Route: 048
  37. POTASSIUM CHLORIDE [Concomitant]
     Active Substance: POTASSIUM CHLORIDE
     Indication: Oedema
     Dosage: 20 MILLIEQUIVALENTS DAILY;
     Route: 048
  38. ZOLPIDEM TARTRATE [Concomitant]
     Active Substance: ZOLPIDEM TARTRATE
     Indication: Sleep apnoea syndrome
     Dosage: 10 MILLIGRAM DAILY;
     Route: 048

REACTIONS (3)
  - Colon cancer [Recovered/Resolved]
  - Pulmonary oedema [Unknown]
  - Cardiac disorder [Unknown]
